FAERS Safety Report 11209048 (Version 9)
Quarter: 2017Q4

REPORT INFORMATION
  Report Type: Report from Study
  Country: JP (occurrence: JP)
  Receive Date: 20150622
  Receipt Date: 20171113
  Transmission Date: 20180320
  Serious: Yes (Hospitalization, Other)
  Sender: FDA-Public Use
  Company Number: JP-GILEAD-2015-0159343

PATIENT
  Age: 14 Year
  Sex: Male
  Weight: 31 kg

DRUGS (26)
  1. WARFARIN [Concomitant]
     Active Substance: WARFARIN
     Dosage: UNK
  2. REBAMIPIDE [Concomitant]
     Active Substance: REBAMIPIDE
     Dosage: UNK
  3. REBAMIPIDE [Concomitant]
     Active Substance: REBAMIPIDE
     Dosage: UNK
  4. HEPARIN SODIUM. [Concomitant]
     Active Substance: HEPARIN SODIUM
     Indication: THROMBOSIS PROPHYLAXIS
     Dosage: UNK
     Dates: start: 20150724, end: 20150725
  5. BAYASPIRIN [Concomitant]
     Active Substance: ASPIRIN
     Indication: THROMBOSIS PROPHYLAXIS
     Dosage: UNK
  6. MUCOSTA [Concomitant]
     Active Substance: REBAMIPIDE
     Indication: PROPHYLAXIS
     Dosage: UNK
  7. WARFARIN [Concomitant]
     Active Substance: WARFARIN
     Dosage: UNK
  8. WARFARIN [Concomitant]
     Active Substance: WARFARIN
     Dosage: UNK
  9. REBAMIPIDE [Concomitant]
     Active Substance: REBAMIPIDE
     Dosage: UNK
  10. BERAPROST SODIUM [Concomitant]
     Active Substance: BERAPROST SODIUM
     Indication: PULMONARY ARTERIAL HYPERTENSION
     Dosage: UNK
     Dates: end: 20140806
  11. WARFARIN [Concomitant]
     Active Substance: WARFARIN
     Dosage: UNK
  12. REBAMIPIDE [Concomitant]
     Active Substance: REBAMIPIDE
     Dosage: UNK
  13. FUROSEMIDE. [Concomitant]
     Active Substance: FUROSEMIDE
  14. IOPAMIRON [Suspect]
     Active Substance: IOPAMIDOL
     Indication: INVESTIGATION
     Dosage: UNK
     Route: 042
     Dates: start: 20140730
  15. WARFARIN [Concomitant]
     Active Substance: WARFARIN
     Dosage: UNK
  16. METILDIGOXIN [Concomitant]
     Active Substance: METILDIGOXIN
     Indication: PULMONARY ARTERIAL HYPERTENSION
     Dosage: UNK
     Dates: end: 20140730
  17. NORDITROPIN [Concomitant]
     Active Substance: SOMATROPIN
     Dosage: UNK
  18. REBAMIPIDE [Concomitant]
     Active Substance: REBAMIPIDE
     Indication: PROPHYLAXIS
     Dosage: UNK
  19. RENIVACE [Concomitant]
     Active Substance: ENALAPRIL
     Indication: PULMONARY ARTERIAL HYPERTENSION
     Dosage: UNK
  20. HEPARIN SODIUM. [Concomitant]
     Active Substance: HEPARIN SODIUM
     Indication: PULMONARY ARTERIAL HYPERTENSION
     Dosage: UNK
     Dates: start: 20140530, end: 20140604
  21. JUVELA N [Concomitant]
     Active Substance: TOCOPHERYL NICOTINATE, D-.ALPHA.
     Dosage: UNK
     Dates: start: 20131216, end: 20140120
  22. AMBRISENTAN [Suspect]
     Active Substance: AMBRISENTAN
     Indication: PULMONARY ARTERIAL HYPERTENSION
     Dosage: 2.5 MG, QD
     Route: 048
     Dates: start: 20130930, end: 20160120
  23. WARFARIN [Concomitant]
     Active Substance: WARFARIN
     Indication: THROMBOSIS PROPHYLAXIS
     Dosage: UNK
  24. BAYASPIRIN [Concomitant]
     Active Substance: ASPIRIN
     Indication: PULMONARY ARTERIAL HYPERTENSION
     Dosage: UNK
  25. REBAMIPIDE [Concomitant]
     Active Substance: REBAMIPIDE
     Dosage: UNK
  26. JUVELA                             /00110502/ [Concomitant]
     Dosage: UNK
     Dates: start: 20131216, end: 20140120

REACTIONS (15)
  - Upper respiratory tract inflammation [Recovered/Resolved]
  - Arthropod sting [Recovered/Resolved]
  - Skin infection [Recovered/Resolved]
  - Injection site dermatitis [Recovered/Resolved]
  - Gastroenteritis [Recovered/Resolved]
  - Pulmonary artery stenosis [Unknown]
  - Nasopharyngitis [Recovered/Resolved]
  - Off label use [Recovered/Resolved]
  - Ascites [Recovered/Resolved]
  - Hyperuricaemia [Recovering/Resolving]
  - Conjunctivitis allergic [Recovered/Resolved]
  - Gastroenteritis [Recovered/Resolved]
  - Drug ineffective [Unknown]
  - Rhinitis allergic [Recovered/Resolved]
  - Ascites [Recovering/Resolving]

NARRATIVE: CASE EVENT DATE: 20130930
